FAERS Safety Report 8429729-5 (Version None)
Quarter: 2012Q2

REPORT INFORMATION
  Report Type: 
  Country: None (occurrence: None)
  Receive Date: 20120612
  Receipt Date: 20120606
  Transmission Date: 20120825
  Serious: No
  Sender: FDA-Public Use
  Company Number: US-PFIZER INC-2012136474

PATIENT
  Sex: Female
  Weight: 54.422 kg

DRUGS (1)
  1. JUNIOR STRENGTH ADVIL [Suspect]
     Indication: HEADACHE
     Dosage: 100 MG, AS NEEDED
     Route: 048
     Dates: start: 20120606, end: 20120606

REACTIONS (3)
  - VOMITING [None]
  - DYSPHAGIA [None]
  - MALAISE [None]
